FAERS Safety Report 10167471 (Version 1)
Quarter: 2014Q2

REPORT INFORMATION
  Report Type: Spontaneous
  Country: BR (occurrence: BR)
  Receive Date: 20140512
  Receipt Date: 20140512
  Transmission Date: 20141212
  Serious: Yes (Other)
  Sender: FDA-Public Use
  Company Number: PHHY2014BR056529

PATIENT
  Sex: Male

DRUGS (1)
  1. ENABLEX [Suspect]
     Dosage: UNK UKN, UNK

REACTIONS (1)
  - Neoplasm malignant [Unknown]
